FAERS Safety Report 6516707-6 (Version None)
Quarter: 2009Q4

REPORT INFORMATION
  Report Type: 
  Country: None (occurrence: None)
  Receive Date: 20091223
  Receipt Date: 20090127
  Transmission Date: 20100525
  Serious: No
  Sender: FDA-Public Use
  Company Number: A0765455A

PATIENT
  Age: 72 Year
  Sex: Male

DRUGS (3)
  1. RYTHMOL [Suspect]
     Indication: ATRIAL FIBRILLATION
     Dosage: 150MG THREE TIMES PER DAY
     Route: 048
     Dates: start: 20020101
  2. LIPITOR [Concomitant]
  3. XALATAN [Concomitant]
     Indication: GLAUCOMA

REACTIONS (1)
  - ABNORMAL DREAMS [None]
